FAERS Safety Report 5621788-8 (Version None)
Quarter: 2008Q1

REPORT INFORMATION
  Report Type: 
  Country: None (occurrence: None)
  Receive Date: 20080211
  Receipt Date: 20080129
  Transmission Date: 20080703
  Serious: Yes (Life-Threatening, Hospitalization, Disabling, Other)
  Sender: FDA-Public Use
  Company Number: DE-BAYER-200812005GPV

PATIENT
  Age: 78 Year
  Sex: Female

DRUGS (13)
  1. ASPIRIN [Suspect]
     Indication: CARDIAC FAILURE
     Route: 048
     Dates: start: 20070621, end: 20070823
  2. ASPIRIN [Suspect]
     Route: 048
     Dates: start: 20071108
  3. MEXITIL [Suspect]
     Indication: ARRHYTHMIA
     Route: 048
     Dates: start: 20071108, end: 20071214
  4. WARFARIN SODIUM [Suspect]
     Indication: CARDIAC FAILURE
     Route: 048
     Dates: start: 20071108, end: 20071213
  5. DIART [Suspect]
     Indication: CARDIAC FAILURE
     Route: 048
     Dates: start: 20071108, end: 20071213
  6. ARTIST [Suspect]
     Indication: CARDIAC FAILURE
     Route: 048
     Dates: start: 20070719, end: 20070823
  7. ARTIST [Suspect]
     Route: 048
     Dates: start: 20070914
  8. MICARDIS [Suspect]
     Indication: CARDIAC FAILURE
     Route: 048
     Dates: start: 20071108, end: 20071213
  9. LENDORMIN [Suspect]
     Indication: INSOMNIA
     Route: 048
     Dates: start: 20071108, end: 20071213
  10. PLAVIX [Suspect]
     Indication: CARDIAC FAILURE
     Route: 048
     Dates: start: 20070719, end: 20070823
  11. ALDACTONE [Suspect]
     Indication: CARDIAC FAILURE
     Route: 048
     Dates: start: 20070705, end: 20071105
  12. BLOPRESS [Suspect]
     Indication: CARDIAC FAILURE
     Route: 048
     Dates: start: 20070621, end: 20071105
  13. PARIET [Suspect]
     Indication: GASTRITIS
     Route: 048
     Dates: start: 20070621, end: 20070823

REACTIONS (5)
  - DRUG RASH WITH EOSINOPHILIA AND SYSTEMIC SYMPTOMS [None]
  - HEPATIC FUNCTION ABNORMAL [None]
  - RENAL FAILURE ACUTE [None]
  - RENAL IMPAIRMENT [None]
  - TOXIC SKIN ERUPTION [None]
